FAERS Safety Report 7403063-4 (Version None)
Quarter: 2011Q2

REPORT INFORMATION
  Report Type: 
  Country: None (occurrence: None)
  Receive Date: 20110408
  Receipt Date: 20110401
  Transmission Date: 20111010
  Serious: Yes (Hospitalization)
  Sender: FDA-Public Use
  Company Number: CA-JNJFOC-20110400889

PATIENT
  Age: 86 Year
  Sex: Female
  Weight: 38.56 kg

DRUGS (8)
  1. ASPIRIN [Concomitant]
     Route: 065
  2. ACETYLSALICYLIC ACID SRT [Concomitant]
     Route: 065
  3. SINEMET [Concomitant]
     Route: 065
  4. ROBAXIN [Suspect]
     Indication: ILL-DEFINED DISORDER
     Route: 065
  5. TYLENOL W/ CODEINE NO. 3 [Suspect]
     Indication: ILL-DEFINED DISORDER
     Route: 065
  6. ARICEPT [Concomitant]
     Route: 048
  7. AGGRENOX [Concomitant]
     Route: 065
  8. RAMIPRIL [Concomitant]
     Route: 065

REACTIONS (1)
  - DEMENTIA [None]
